FAERS Safety Report 5843938-0 (Version None)
Quarter: 2008Q3

REPORT INFORMATION
  Report Type: 
  Country: None (occurrence: None)
  Receive Date: 20080808
  Receipt Date: 20080723
  Transmission Date: 20090109
  Serious: Yes (Death)
  Sender: FDA-Public Use
  Company Number: 2007S1011059

PATIENT
  Sex: Female

DRUGS (1)
  1. TERBINAFINE HCL [Suspect]
     Indication: ONYCHOMYCOSIS
     Dosage: ORAL
     Route: 048

REACTIONS (7)
  - ARTHRITIS [None]
  - ERYTHEMA MULTIFORME [None]
  - LEUKOPENIA [None]
  - MYOCARDIAL INFARCTION [None]
  - RASH MACULAR [None]
  - SYSTEMIC LUPUS ERYTHEMATOSUS [None]
  - TELANGIECTASIA [None]
